FAERS Safety Report 5362426-1 (Version None)
Quarter: 2007Q2

REPORT INFORMATION
  Report Type: 
  Country: None (occurrence: None)
  Receive Date: 20070619
  Receipt Date: 20060613
  Transmission Date: 20071010
  Serious: Yes (Other)
  Sender: FDA-Public Use
  Company Number: NO-ASTRAZENECA-2006SE01886

PATIENT
  Age: 18458 Day
  Sex: Male

DRUGS (4)
  1. STUDY PROCEDURE [Suspect]
     Indication: PEPTIC ULCER HAEMORRHAGE
     Dosage: ENDOSCOPY
     Dates: start: 20060221
  2. ESOMEPRAZOLE MAGNESIUM [Suspect]
     Indication: PEPTIC ULCER HAEMORRHAGE
     Route: 042
     Dates: start: 20060221, end: 20060221
  3. ESOMEPRAZOLE MAGNESIUM [Suspect]
     Route: 042
     Dates: start: 20060221, end: 20060224
  4. ESOMEPRAZOLE MAGNESIUM [Suspect]
     Route: 048
     Dates: start: 20060225

REACTIONS (1)
  - MEDIAN NERVE LESION [None]
